FAERS Safety Report 5430974-1 (Version None)
Quarter: 2007Q3

REPORT INFORMATION
  Report Type: 
  Country: None (occurrence: None)
  Receive Date: 20070830
  Receipt Date: 20070824
  Transmission Date: 20080115
  Serious: Yes (Hospitalization)
  Sender: FDA-Public Use
  Company Number: A0676166A

PATIENT
  Age: 55 Year
  Sex: Female

DRUGS (6)
  1. WELLBUTRIN XL [Suspect]
     Indication: DEPRESSION
     Dosage: 300MG PER DAY
     Route: 048
     Dates: start: 19980101
  2. ZOLOFT [Suspect]
  3. AMBIEN [Concomitant]
  4. XANAX [Concomitant]
  5. NORVASC [Concomitant]
  6. ARTHROTEC [Concomitant]

REACTIONS (8)
  - ADVERSE EVENT [None]
  - AMNESIA [None]
  - ANXIETY [None]
  - CRYING [None]
  - DRUG INEFFECTIVE [None]
  - EMOTIONAL DISTRESS [None]
  - INSOMNIA [None]
  - MOOD SWINGS [None]
